FAERS Safety Report 5244501-5 (Version None)
Quarter: 2007Q1

REPORT INFORMATION
  Report Type: 
  Country: None (occurrence: None)
  Receive Date: 20070222
  Receipt Date: 20070220
  Transmission Date: 20070707
  Serious: Yes (Life-Threatening)
  Sender: FDA-Public Use
  Company Number: DE-BOEHRINGER INGELHEIM PHARMACEUTICALS, INC.-2007-DE-00878DE

PATIENT
  Sex: Male
  Weight: 90 kg

DRUGS (4)
  1. SIFROL [Suspect]
     Indication: RESTLESS LEGS SYNDROME
     Route: 048
     Dates: start: 20061101, end: 20070101
  2. MESALAZIN [Concomitant]
     Indication: COLITIS COLLAGENOUS
     Route: 048
  3. BUDESONIDE [Concomitant]
     Indication: COLITIS COLLAGENOUS
     Route: 048
  4. ASTONIN-H [Concomitant]
     Indication: ADRENAL INSUFFICIENCY
     Route: 048

REACTIONS (3)
  - ANGINA PECTORIS [None]
  - BLOOD PRESSURE INCREASED [None]
  - TACHYCARDIA [None]
